FAERS Safety Report 7961774-6 (Version None)
Quarter: 2011Q4

REPORT INFORMATION
  Report Type: 
  Country: None (occurrence: None)
  Receive Date: 20111207
  Receipt Date: 20111129
  Transmission Date: 20120403
  Serious: Yes (Death, Hospitalization)
  Sender: FDA-Public Use
  Company Number: PT-BAXTER-2011BH037552

PATIENT
  Age: 21 Year
  Sex: Female

DRUGS (5)
  1. CYCLOPHOSPHAMIDE [Suspect]
     Indication: METASTASES TO LUNG
     Route: 065
  2. VINCRISTINE [Suspect]
     Indication: METASTASES TO LUNG
     Route: 065
  3. MORPHINE [Concomitant]
     Indication: PAIN
     Route: 065
  4. DOXORUBICIN HCL [Suspect]
     Indication: LUNG NEOPLASM
     Route: 065
  5. IFOSFAMIDE [Suspect]
     Indication: METASTASES TO LUNG
     Route: 065

REACTIONS (3)
  - FUNGAL SEPSIS [None]
  - HAEMATOTOXICITY [None]
  - BACTERIAL SEPSIS [None]
